FAERS Safety Report 22263304 (Version 1)
Quarter: 2023Q2

REPORT INFORMATION
  Report Type: Report from Study
  Country: DE (occurrence: None)
  Receive Date: 20230428
  Receipt Date: 20230428
  Transmission Date: 20230722
  Serious: Yes (Other)
  Sender: FDA-Public Use
  Company Number: DE-Merck Healthcare KGaA-9398638

PATIENT
  Age: 45 Year
  Sex: Female

DRUGS (1)
  1. REBIF [Suspect]
     Active Substance: INTERFERON BETA-1A
     Indication: Multiple sclerosis
     Dosage: THERAPY START: FOR ABOUT 10 YEARS (AS OF 25 APR 2023), REBISMART

REACTIONS (2)
  - Cerebrovascular accident [Unknown]
  - Aneurysm [Unknown]

NARRATIVE: CASE EVENT DATE: 20170101
